FAERS Safety Report 9348233 (Version 1)
Quarter: 2013Q2

REPORT INFORMATION
  Report Type: Spontaneous
  Country: US (occurrence: US)
  Receive Date: 20130614
  Receipt Date: 20130614
  Transmission Date: 20140414
  Serious: Yes (Other)
  Sender: FDA-Public Use
  Company Number: US-BAYER-2013-071606

PATIENT
  Age: 24 Year
  Sex: Female

DRUGS (4)
  1. YASMIN [Suspect]
     Indication: ACNE
  2. ACETAZOLAMIDE [Concomitant]
  3. IMODIUM [Concomitant]
  4. OMEPRAZOLE [Concomitant]

REACTIONS (3)
  - Cerebrovascular accident [Recovered/Resolved]
  - Deep vein thrombosis [None]
  - Cerebral infarction [None]
